FAERS Safety Report 8562178-8 (Version None)
Quarter: 2012Q3

REPORT INFORMATION
  Report Type: 
  Country: None (occurrence: None)
  Receive Date: 20120802
  Receipt Date: 20120710
  Transmission Date: 20120928
  Serious: No
  Sender: FDA-Public Use
  Company Number: US-AMGEN-USASP2012042678

PATIENT
  Age: 62 Year
  Sex: Female

DRUGS (2)
  1. HUMIRA [Concomitant]
     Dosage: UNK
  2. ENBREL [Suspect]
     Indication: PSORIATIC ARTHROPATHY
     Dosage: 50 MG, QWK
     Dates: start: 20070220

REACTIONS (9)
  - BREAST HAEMATOMA [None]
  - PSORIATIC ARTHROPATHY [None]
  - TOOTH INJURY [None]
  - PAIN [None]
  - ACCIDENT [None]
  - POST-TRAUMATIC NECK SYNDROME [None]
  - STRESS [None]
  - CONTUSION [None]
  - DYSPNOEA [None]
